FAERS Safety Report 7121061-5 (Version None)
Quarter: 2010Q4

REPORT INFORMATION
  Report Type: 
  Country: None (occurrence: None)
  Receive Date: 20101124
  Receipt Date: 20101117
  Transmission Date: 20110411
  Serious: Yes (Hospitalization)
  Sender: FDA-Public Use
  Company Number: JP-JNJFOC-20091006406

PATIENT
  Sex: Female
  Weight: 42 kg

DRUGS (15)
  1. DOXORUBICIN HCL [Suspect]
     Indication: OVARIAN CANCER RECURRENT
     Dosage: CYCLE 2
     Route: 042
  2. DOXORUBICIN HCL [Suspect]
     Dosage: CYCLE 6
     Route: 042
  3. DOXORUBICIN HCL [Suspect]
     Dosage: CYCLE 4
     Route: 042
  4. DOXORUBICIN HCL [Suspect]
     Dosage: CYCLE 3
     Route: 042
  5. DOXORUBICIN HCL [Suspect]
     Dosage: CYCLE 7
     Route: 042
  6. DOXORUBICIN HCL [Suspect]
     Dosage: CYCLE 1
     Route: 042
  7. DOXORUBICIN HCL [Suspect]
     Dosage: CYCLE 10
     Route: 042
  8. DOXORUBICIN HCL [Suspect]
     Dosage: CYCLE 8
     Route: 042
  9. DOXORUBICIN HCL [Suspect]
     Dosage: CYCLE 9
     Route: 042
  10. DECADRON [Concomitant]
     Indication: PROPHYLAXIS
     Route: 048
  11. DECADRON [Concomitant]
     Route: 048
  12. DECADRON [Concomitant]
     Route: 048
  13. HACHIAZULE [Concomitant]
     Indication: PROPHYLAXIS
     Route: 002
  14. HEPARIN [Concomitant]
     Indication: PALMAR-PLANTAR ERYTHRODYSAESTHESIA SYNDROME
     Route: 061
  15. DECADRON [Concomitant]
     Route: 042

REACTIONS (1)
  - GASTROINTESTINAL HAEMORRHAGE [None]
